FAERS Safety Report 12891015 (Version 1)
Quarter: 2016Q4

REPORT INFORMATION
  Report Type: Spontaneous
  Country: JP (occurrence: JP)
  Receive Date: 20161027
  Receipt Date: 20161027
  Transmission Date: 20170207
  Serious: Yes (Death)
  Sender: FDA-Public Use
  Company Number: JP-MALLINCKRODT-T201605412

PATIENT
  Age: 52 Year
  Sex: Male
  Weight: 62 kg

DRUGS (15)
  1. MAGNESIUM OXIDE. [Concomitant]
     Active Substance: MAGNESIUM OXIDE
     Dosage: 3G, UNK
     Route: 048
     Dates: end: 20150717
  2. METHADONE [Suspect]
     Active Substance: METHADONE HYDROCHLORIDE
     Indication: CANCER PAIN
     Dosage: 10 MG (30 MG TOTAL DAILY DOSE)
     Route: 048
     Dates: start: 20150624, end: 20150630
  3. PROEMEND [Concomitant]
     Active Substance: FOSAPREPITANT
     Dosage: 150 MG, UNK
     Route: 048
     Dates: start: 20150630, end: 20150630
  4. 5-FU [Concomitant]
     Active Substance: FLUOROURACIL
     Dosage: 4030 MG, UNK
     Route: 051
     Dates: start: 20150630, end: 20150702
  5. PURSENNID [Concomitant]
     Active Substance: SENNOSIDES A AND B
     Dosage: 36 MG, UNK
     Route: 048
     Dates: end: 20150717
  6. LANSOPRAZOLE. [Concomitant]
     Active Substance: LANSOPRAZOLE
     Dosage: 15 MG, UNK
     Route: 048
     Dates: end: 20150717
  7. DEXART [Concomitant]
     Active Substance: DEXAMETHASONE SODIUM PHOSPHATE
     Dosage: 6.6 MG, ONCE
     Route: 051
     Dates: start: 20150630, end: 20150630
  8. TOPOTECIN [Concomitant]
     Active Substance: IRINOTECAN HYDROCHLORIDE
     Dosage: 252 MG, UNK
     Route: 051
     Dates: start: 20150630, end: 20150630
  9. NABOAL [Concomitant]
     Active Substance: DICLOFENAC
     Indication: ANALGESIC THERAPY
     Dosage: 75 MG, UNK
     Route: 048
     Dates: end: 20150717
  10. METHADONE [Suspect]
     Active Substance: METHADONE HYDROCHLORIDE
     Dosage: 15 MG (45 MG TOTAL DAILY DOSE)
     Route: 048
     Dates: start: 20150701, end: 20150717
  11. OXINORM [Concomitant]
     Active Substance: OXYCODONE HYDROCHLORIDE
     Indication: ANALGESIC THERAPY
     Dosage: 20 MG, PRN
     Route: 048
     Dates: start: 20150623
  12. LYRICA [Concomitant]
     Active Substance: PREGABALIN
     Indication: ANALGESIC THERAPY
     Dosage: 75 MG, UNK
     Route: 048
     Dates: end: 20150717
  13. ALOXI [Concomitant]
     Active Substance: PALONOSETRON HYDROCHLORIDE
     Dosage: 0.75 MG, UNK
     Route: 041
     Dates: start: 20150630, end: 20150630
  14. LEVOFOLINATE [Concomitant]
     Active Substance: LEVOLEUCOVORIN CALCIUM
     Dosage: 340 MG, UNK
     Route: 051
     Dates: start: 20150630, end: 20150630
  15. 5-FU [Concomitant]
     Active Substance: FLUOROURACIL
     Dosage: 670 MG, UNK
     Route: 051
     Dates: start: 20150630, end: 20150630

REACTIONS (1)
  - Acute respiratory distress syndrome [Fatal]

NARRATIVE: CASE EVENT DATE: 20150717
